FAERS Safety Report 6372905-6 (Version None)
Quarter: 2009Q3

REPORT INFORMATION
  Report Type: 
  Country: None (occurrence: None)
  Receive Date: 20090924
  Receipt Date: 20090202
  Transmission Date: 20100115
  Serious: No
  Sender: FDA-Public Use
  Company Number: US-ASTRAZENECA-2008UW27209

PATIENT
  Age: 56 Year
  Sex: Female
  Weight: 78.5 kg

DRUGS (13)
  1. SEROQUEL [Suspect]
     Indication: DEPRESSION
     Route: 048
     Dates: start: 20070501
  2. SEROQUEL [Suspect]
     Indication: ANXIETY
     Route: 048
     Dates: start: 20070501
  3. SEROQUEL [Suspect]
     Indication: MOOD ALTERED
     Route: 048
     Dates: start: 20070501
  4. SEROQUEL [Suspect]
     Route: 048
  5. SEROQUEL [Suspect]
     Route: 048
  6. SEROQUEL [Suspect]
     Route: 048
  7. SEROQUEL [Suspect]
     Route: 048
     Dates: start: 20081207
  8. SEROQUEL [Suspect]
     Route: 048
     Dates: start: 20081207
  9. SEROQUEL [Suspect]
     Route: 048
     Dates: start: 20081207
  10. CYMBALTA [Concomitant]
  11. LITHIUM [Concomitant]
  12. XANAX [Concomitant]
  13. ABILIFY [Concomitant]

REACTIONS (7)
  - COORDINATION ABNORMAL [None]
  - DYSKINESIA [None]
  - FATIGUE [None]
  - MUSCULOSKELETAL STIFFNESS [None]
  - PAIN IN EXTREMITY [None]
  - THINKING ABNORMAL [None]
  - WEIGHT INCREASED [None]
